FAERS Safety Report 6492666-X (Version None)
Quarter: 2009Q4

REPORT INFORMATION
  Report Type: 
  Country: None (occurrence: None)
  Receive Date: 20091214
  Receipt Date: 20091202
  Transmission Date: 20100525
  Serious: Yes (Other)
  Sender: FDA-Public Use
  Company Number: GB-PFIZER INC-2009299844

PATIENT
  Age: 30 Year
  Sex: Female

DRUGS (1)
  1. CHAMPIX [Suspect]
     Dosage: UNK
     Dates: start: 20091101

REACTIONS (5)
  - BLOOD PRESSURE ABNORMAL [None]
  - DRY MOUTH [None]
  - DYSGEUSIA [None]
  - SOMNOLENCE [None]
  - TOOTH DISORDER [None]
